FAERS Safety Report 4467783-6 (Version None)
Quarter: 2004Q4

REPORT INFORMATION
  Report Type: 
  Country: None (occurrence: None)
  Receive Date: 20041004
  Receipt Date: 20041004
  Transmission Date: 20050328
  Serious: Yes (Death)
  Sender: FDA-Public Use
  Company Number: None

PATIENT
  Sex: Female
  Weight: 73.4827 kg

DRUGS (9)
  1. GEMCITABINE 200 MG AND 1 GM ELI LILLY [Suspect]
     Indication: PANCREATIC CARCINOMA
     Dosage: 1000 MG/M2 WEEKLY INTRAVENOUS
     Route: 048
     Dates: start: 20040723, end: 20040827
  2. IRESSA [Suspect]
     Indication: PANCREATIC CARCINOMA
     Dosage: 250 MG DAILY ORAL
     Route: 048
     Dates: start: 20040723, end: 20040910
  3. SYNTHROID [Concomitant]
  4. MAXZIDE [Concomitant]
  5. PROTONIX [Concomitant]
  6. PERCOCET [Concomitant]
  7. CENTRUM [Concomitant]
  8. XANAX [Concomitant]
  9. AMBIEN [Concomitant]

REACTIONS (3)
  - DRUG TOXICITY [None]
  - HEPATIC FAILURE [None]
  - MENTAL STATUS CHANGES [None]
